FAERS Safety Report 8697433 (Version 4)
Quarter: 2013Q2

REPORT INFORMATION
  Report Type: Spontaneous
  Country: IT (occurrence: IT)
  Receive Date: 20120801
  Receipt Date: 20130509
  Transmission Date: 20140414
  Serious: Yes (Hospitalization)
  Sender: FDA-Public Use
  Company Number: IT-EISAI INC-E7389-02773-SPO-IT

PATIENT
  Age: 61 Year
  Sex: Female

DRUGS (2)
  1. HALAVEN [Suspect]
     Indication: BREAST CANCER
     Route: 041
     Dates: start: 20120518
  2. HALAVEN [Suspect]
     Route: 041
     Dates: start: 20120627, end: 20120627

REACTIONS (1)
  - Myocardial ischaemia [Recovered/Resolved]
